FAERS Safety Report 4269708-5 (Version None)
Quarter: 2004Q1

REPORT INFORMATION
  Report Type: 
  Country: None (occurrence: None)
  Receive Date: 20040106
  Receipt Date: 20031219
  Transmission Date: 20041129
  Serious: Yes (Other)
  Sender: FDA-Public Use
  Company Number: 601048

PATIENT
  Age: 15 Month
  Sex: Male
  Weight: 10 kg

DRUGS (1)
  1. RECOMBINATE [Suspect]
     Indication: HAEMOPHILIA A WITH ANTI FACTOR VIII
     Dosage: 200 IU/KG; PRN; INTRAVENOUS
     Route: 042
     Dates: start: 20031105, end: 20030101

REACTIONS (2)
  - ANAPHYLACTIC SHOCK [None]
  - RASH PAPULAR [None]
